FAERS Safety Report 7202256-9 (Version None)
Quarter: 2010Q4

REPORT INFORMATION
  Report Type: 
  Country: None (occurrence: None)
  Receive Date: 20101229
  Receipt Date: 20101220
  Transmission Date: 20110411
  Serious: Yes (Other)
  Sender: FDA-Public Use
  Company Number: JP-ASTRAZENECA-2010SE60412

PATIENT
  Sex: Male

DRUGS (2)
  1. MARCAINE [Suspect]
     Indication: EPIDURAL ANAESTHESIA
     Route: 008
  2. XYLOCAINE [Suspect]
     Indication: EPIDURAL ANAESTHESIA
     Route: 008

REACTIONS (8)
  - BLOOD PRESSURE DECREASED [None]
  - CONVULSION [None]
  - DIZZINESS [None]
  - DYSPNOEA [None]
  - HYPOAESTHESIA [None]
  - LOSS OF CONSCIOUSNESS [None]
  - OXYGEN SATURATION DECREASED [None]
  - VOMITING [None]
